FAERS Safety Report 8984514 (Version 1)
Quarter: 2012Q4

REPORT INFORMATION
  Report Type: 
  Country: BR (occurrence: BR)
  Receive Date: 20121226
  Receipt Date: 20121226
  Transmission Date: 20130627
  Serious: Yes (Hospitalization, Other)
  Sender: FDA-Public Use
  Company Number: BR-JNJFOC-20121207730

PATIENT
  Age: 46 Year
  Sex: Female
  Weight: 80 kg

DRUGS (5)
  1. REMICADE [Suspect]
     Indication: ANKYLOSING SPONDYLITIS
     Route: 042
     Dates: end: 20120817
  2. REMICADE [Suspect]
     Indication: ANKYLOSING SPONDYLITIS
     Route: 042
     Dates: start: 2007
  3. SYNTHROID [Concomitant]
     Indication: THYROIDECTOMY
     Route: 065
  4. VITAMINS,NOS [Concomitant]
     Indication: BLOOD CALCIUM DECREASED
     Route: 065
  5. MELOXICAM [Concomitant]
     Indication: ANTIINFLAMMATORY THERAPY
     Route: 065

REACTIONS (9)
  - Sepsis [Recovered/Resolved]
  - Anaemia [Recovered/Resolved]
  - Insulin resistance [Not Recovered/Not Resolved]
  - Pyrexia [Recovered/Resolved]
  - Pain [Recovered/Resolved]
  - Weight decreased [Recovering/Resolving]
  - Ankylosing spondylitis [Recovered/Resolved]
  - White blood cell count increased [Recovered/Resolved]
  - Musculoskeletal stiffness [Not Recovered/Not Resolved]
